FAERS Safety Report 8914913 (Version 2)
Quarter: 2012Q4

REPORT INFORMATION
  Report Type: 
  Country: US (occurrence: US)
  Receive Date: 20121116
  Receipt Date: 20121212
  Transmission Date: 20130627
  Serious: Yes (Other)
  Sender: FDA-Public Use
  Company Number: US-ASTRAZENECA-2012SE71650

PATIENT
  Age: 69 Year
  Sex: Female

DRUGS (21)
  1. METOPROLOL [Suspect]
     Route: 048
  2. SYMBICORT PMDI [Suspect]
     Dosage: 160/4.5 MCG, TWO PUFFS, DAILY
     Route: 055
  3. SYMBICORT PMDI [Suspect]
     Dosage: 160/4.5 MCG, FOUR PUFFS DAILY
     Route: 055
  4. DIOVAN [Suspect]
     Route: 048
  5. PLAVIX [Suspect]
     Route: 048
  6. MAXZIDE [Concomitant]
     Dosage: 75-50 1 TABLET DAILY
  7. COREG [Concomitant]
  8. COZAAR [Concomitant]
  9. PANTOPRAZOLE [Concomitant]
  10. NITROQUICK [Concomitant]
     Dosage: 0.4 AS DIRECTED AND NEEDED
  11. ALLEGRA D [Concomitant]
  12. FLONACE [Concomitant]
     Dosage: 2 PUFFS DAILY
  13. ASPIRIN [Concomitant]
  14. IRON [Concomitant]
  15. TYLANOL [Concomitant]
     Indication: ARTHRITIS
     Dosage: SIX PILLS DAILY, 650MG
  16. ZOLPIDEM [Concomitant]
     Indication: SLEEP DISORDER
  17. ESRADIOL [Concomitant]
  18. 3 IN ONE FLUE SHOT [Concomitant]
     Dates: start: 20101027
  19. PHENOMENA SHOT [Concomitant]
     Dates: start: 20090225
  20. H1N1 FLU SHOT [Concomitant]
     Dates: start: 20091218
  21. H1N1 FLU SHOT [Concomitant]
     Dates: start: 20111003

REACTIONS (8)
  - Myocardial infarction [Unknown]
  - Carpal tunnel syndrome [Unknown]
  - Cataract [Unknown]
  - Pruritus [Unknown]
  - Dyspnoea [Unknown]
  - Dizziness [Unknown]
  - Adverse event [Unknown]
  - Drug effect decreased [Unknown]
